FAERS Safety Report 9738650 (Version 1)
Quarter: 2013Q4

REPORT INFORMATION
  Report Type: Spontaneous
  Country: US (occurrence: US)
  Receive Date: 20131209
  Receipt Date: 20131209
  Transmission Date: 20140711
  Serious: No
  Sender: FDA-Public Use
  Company Number: US-BIOGENIDEC-2013BI068661

PATIENT
  Age: 34 Year
  Sex: Female

DRUGS (3)
  1. AVONEX [Suspect]
     Indication: MULTIPLE SCLEROSIS
     Route: 030
     Dates: start: 20110621
  2. AVONEX [Suspect]
     Indication: MULTIPLE SCLEROSIS
     Route: 030
     Dates: start: 20130712
  3. TYLENOL [Concomitant]
     Indication: PREMEDICATION

REACTIONS (9)
  - Oral mucosal blistering [Not Recovered/Not Resolved]
  - Chills [Recovered/Resolved]
  - Myalgia [Recovered/Resolved]
  - Malaise [Unknown]
  - Influenza like illness [Not Recovered/Not Resolved]
  - Muscle spasms [Unknown]
  - Pyrexia [Unknown]
  - Insomnia [Recovered/Resolved]
  - Alopecia [Not Recovered/Not Resolved]
